FAERS Safety Report 17420476 (Version 1)
Quarter: 2020Q1

REPORT INFORMATION
  Report Type: Spontaneous
  Country: CA (occurrence: CA)
  Receive Date: 20200214
  Receipt Date: 20200214
  Transmission Date: 20200409
  Serious: Yes (Other)
  Sender: FDA-Public Use
  Company Number: CA-ROCHE-2549525

PATIENT
  Sex: Male

DRUGS (4)
  1. CELLCEPT [Suspect]
     Active Substance: MYCOPHENOLATE MOFETIL\MYCOPHENOLATE MOFETIL HYDROCHLORIDE
     Indication: PRODUCT USED FOR UNKNOWN INDICATION
     Route: 065
  2. ADALAT [Concomitant]
     Active Substance: NIFEDIPINE
  3. MAGNESIUM [Concomitant]
     Active Substance: MAGNESIUM
  4. VIT D [Concomitant]
     Active Substance: VITAMIN D NOS

REACTIONS (1)
  - Arthritis [Unknown]
